FAERS Safety Report 24237451 (Version 2)
Quarter: 2024Q3

REPORT INFORMATION
  Report Type: Report from Study
  Country: CN (occurrence: CN)
  Receive Date: 20240822
  Receipt Date: 20240829
  Transmission Date: 20241017
  Serious: Yes (Other)
  Sender: BLUEPRINT MEDICINES
  Company Number: CN-CSTONE PHARMACEUTICALS (SUZHOU) CO., LTD.-2024CN01055

PATIENT

DRUGS (6)
  1. PRALSETINIB [Suspect]
     Active Substance: PRALSETINIB
     Indication: Non-small cell lung cancer
     Dosage: 400 MILLIGRAM
     Route: 048
     Dates: start: 202401
  2. PRALSETINIB [Suspect]
     Active Substance: PRALSETINIB
     Dosage: 300 MILLIGRAM
     Route: 048
  3. PRALSETINIB [Suspect]
     Active Substance: PRALSETINIB
     Dosage: 200 MILLIGRAM
     Route: 048
  4. AUMOLERTINIB [Suspect]
     Active Substance: AUMOLERTINIB
     Indication: Non-small cell lung cancer
     Dosage: UNK
     Route: 065
  5. COENZYME Q10 [TOCOPHERYL ACETATE;UBIDECARENONE] [Concomitant]
     Indication: Supplementation therapy
     Dosage: UNK
  6. TRIMETAZIDINE [Concomitant]
     Active Substance: TRIMETAZIDINE
     Indication: Product used for unknown indication
     Dosage: UNK

REACTIONS (3)
  - Myocardial necrosis marker increased [Recovering/Resolving]
  - Swelling face [Recovering/Resolving]
  - Oedema peripheral [Recovering/Resolving]
